FAERS Safety Report 8838647 (Version 1)
Quarter: 2012Q4

REPORT INFORMATION
  Report Type: 
  Country: ES (occurrence: ES)
  Receive Date: 20121012
  Receipt Date: 20121012
  Transmission Date: 20130627
  Serious: Yes (Hospitalization)
  Sender: FDA-Public Use
  Company Number: ES-B.I. PHARMACEUTICALS,INC./RIDGEFIELD-2012-ES-00380ES

PATIENT
  Age: 61 Year
  Sex: Female

DRUGS (2)
  1. TRAJENTA [Suspect]
     Indication: DIABETES MELLITUS
     Dosage: 5 mg
     Route: 048
     Dates: end: 201207
  2. ANALGESICS [Concomitant]
     Indication: PAIN
     Dosage: as required

REACTIONS (6)
  - Polyarthritis [Recovered/Resolved]
  - Serum sickness [Recovered/Resolved]
  - Hypersensitivity [Recovered/Resolved]
  - Oedema [Recovered/Resolved]
  - Sarcoidosis [Recovered/Resolved]
  - Lymph node palpable [Recovered/Resolved]
